FAERS Safety Report 5369422-9 (Version None)
Quarter: 2007Q2

REPORT INFORMATION
  Report Type: 
  Country: None (occurrence: None)
  Receive Date: 20070625
  Receipt Date: 20070613
  Transmission Date: 20071010
  Serious: Yes (Hospitalization)
  Sender: FDA-Public Use
  Company Number: US-ELI_LILLY_AND_COMPANY-US200703001967

PATIENT
  Age: 43 Year
  Sex: Female
  Weight: 102.04 kg

DRUGS (12)
  1. ZYPREXA [Suspect]
     Dosage: 5 MG, UNK
     Dates: start: 19990303, end: 20030409
  2. ZYPREXA [Suspect]
     Dosage: 10 MG, UNK
     Dates: start: 20031018, end: 20051202
  3. ZYPREXA [Suspect]
     Dosage: 15 MG, UNK
     Dates: start: 20060226, end: 20060308
  4. SEROQUEL [Concomitant]
     Dates: start: 20031016, end: 20040810
  5. SEROQUEL [Concomitant]
     Dates: start: 20060309, end: 20060511
  6. GEODON [Concomitant]
     Dates: start: 20060824, end: 20060828
  7. COMPAZINE [Concomitant]
     Dates: start: 20000202
  8. CELEXA [Concomitant]
     Dates: start: 19991008
  9. EFFEXOR [Concomitant]
     Dates: start: 19990225
  10. EFFEXOR [Concomitant]
     Dates: start: 19990608
  11. LOPRESSOR [Concomitant]
     Dates: start: 20040217
  12. MICROZIDE [Concomitant]
     Dates: start: 20010419

REACTIONS (5)
  - BLOOD CHOLESTEROL INCREASED [None]
  - HEPATITIS C [None]
  - HYPERGLYCAEMIA [None]
  - OBESITY [None]
  - WEIGHT INCREASED [None]
